FAERS Safety Report 8799984 (Version 1)
Quarter: 2012Q4

REPORT INFORMATION
  Report Type: 
  Country: NL (occurrence: NL)
  Receive Date: 20120921
  Receipt Date: 20120921
  Transmission Date: 20130627
  Serious: Yes (Other)
  Sender: FDA-Public Use
  Company Number: PHHY2012NL081963

PATIENT
  Sex: Female

DRUGS (4)
  1. ZOMETA [Suspect]
     Indication: BREAST CANCER METASTATIC
     Dosage: mg/100 ml 1x per 28 days
  2. ZOMETA [Suspect]
     Dosage: mg/100 ml 1x per 28 days
     Dates: start: 20120227
  3. ZOMETA [Suspect]
     Dosage: mg/100 ml 1x per 28 days
     Dates: start: 20120731
  4. ZOMETA [Suspect]
     Dosage: mg/100 ml 1x per 28 days
     Dates: start: 20120827

REACTIONS (1)
  - General physical health deterioration [Unknown]
